FAERS Safety Report 4606911-6 (Version None)
Quarter: 2005Q1

REPORT INFORMATION
  Report Type: 
  Country: None (occurrence: None)
  Receive Date: 20050309
  Receipt Date: 20050222
  Transmission Date: 20050727
  Serious: Yes (Hospitalization)
  Sender: FDA-Public Use
  Company Number: MPS1-10282

PATIENT
  Age: 5 Year
  Sex: Male
  Weight: 15.1 kg

DRUGS (1)
  1. ALDURAZYME [Suspect]
     Indication: MUCOPOLYSACCHARIDOSIS I
     Dosage: 0.58 MG QWK IV
     Route: 042
     Dates: start: 20030723, end: 20040513

REACTIONS (5)
  - HEPATIC FAILURE [None]
  - HEPATIC NECROSIS [None]
  - HEPATITIS A [None]
  - HYPERSENSITIVITY [None]
  - HYPOGLYCAEMIA [None]
